FAERS Safety Report 19752738 (Version 2)
Quarter: 2021Q3

REPORT INFORMATION
  Report Type: Spontaneous
  Country: CH (occurrence: CH)
  Receive Date: 20210826
  Receipt Date: 20210915
  Transmission Date: 20211014
  Serious: Yes (Death, Other)
  Sender: FDA-Public Use
  Company Number: CH-PURDUE-USA-2021-0282632

PATIENT
  Age: 17 Year
  Sex: Male
  Weight: 117 kg

DRUGS (7)
  1. SEVRE?LONG [Suspect]
     Active Substance: MORPHINE SULFATE
     Dosage: 2 DF,  (STRENGTH 120MG), DAY BEFORE DEATH
     Route: 048
  2. MST CONTINUS [Suspect]
     Active Substance: MORPHINE SULFATE
     Indication: PRODUCT USED FOR UNKNOWN INDICATION
     Dosage: UNK
     Route: 065
  3. MST CONTINUS [Suspect]
     Active Substance: MORPHINE SULFATE
     Dosage: 17 DF, STRENGTH 30MG, DURING THE NIGHT
     Route: 065
  4. MST CONTINUS [Suspect]
     Active Substance: MORPHINE SULFATE
     Dosage: 10 DF, STRENGTH 30MG, DURING THE DAY
     Route: 065
  5. SEVRE?LONG [Suspect]
     Active Substance: MORPHINE SULFATE
     Dosage: 3 DF, DAILY (STRENGTH 120MG), FOR 3 DAYS
     Route: 048
  6. SEVRE?LONG [Suspect]
     Active Substance: MORPHINE SULFATE
     Dosage: 3 DF, DAILY (STRENGTH 120MG), FOR SEVERAL DAYS
     Route: 048
  7. SEVRE?LONG [Suspect]
     Active Substance: MORPHINE SULFATE
     Indication: PRODUCT USED FOR UNKNOWN INDICATION
     Dosage: 3 DF, DAILY (STRENGTH 120MG)
     Route: 065

REACTIONS (1)
  - Poisoning [Fatal]
